FAERS Safety Report 12327876 (Version 6)
Quarter: 2016Q3

REPORT INFORMATION
  Report Type: Spontaneous
  Country: JP (occurrence: JP)
  Receive Date: 20160503
  Receipt Date: 20160817
  Transmission Date: 20161109
  Serious: Yes (Other)
  Sender: FDA-Public Use
  Company Number: JP-GILEAD-2016-0210093

PATIENT
  Sex: Male

DRUGS (2)
  1. REBETOL [Suspect]
     Active Substance: RIBAVIRIN
     Indication: HEPATITIS C
     Dosage: UNK
     Route: 048
     Dates: start: 201510, end: 201512
  2. SOVALDI [Suspect]
     Active Substance: SOFOSBUVIR
     Indication: HEPATITIS C
     Dosage: UNK
     Route: 048
     Dates: start: 201510, end: 201512

REACTIONS (3)
  - Drug ineffective [Not Recovered/Not Resolved]
  - Hepatic cancer recurrent [Unknown]
  - Hepatitis C virus test positive [Not Recovered/Not Resolved]

NARRATIVE: CASE EVENT DATE: 201601
